FAERS Safety Report 26163069 (Version 1)
Quarter: 2025Q4

REPORT INFORMATION
  Report Type: Spontaneous
  Country: US (occurrence: None)
  Receive Date: 20251216
  Receipt Date: 20251216
  Transmission Date: 20260118
  Serious: Yes (Hospitalization)
  Sender: FDA-CTU
  Company Number: None

PATIENT
  Age: 50 Year
  Sex: Female
  Weight: 78 kg

DRUGS (1)
  1. LENALIDOMIDE [Suspect]
     Active Substance: LENALIDOMIDE
     Dates: end: 20251208

REACTIONS (10)
  - Upper gastrointestinal haemorrhage [None]
  - Mallory-Weiss syndrome [None]
  - Gastritis [None]
  - Hiatus hernia [None]
  - Haematemesis [None]
  - Abdominal pain [None]
  - Diarrhoea [None]
  - Haematocrit decreased [None]
  - Vomiting [None]
  - Therapy interrupted [None]

NARRATIVE: CASE EVENT DATE: 20251209
